FAERS Safety Report 5671025-3 (Version None)
Quarter: 2008Q1

REPORT INFORMATION
  Report Type: 
  Country: None (occurrence: None)
  Receive Date: 20080313
  Receipt Date: 20080306
  Transmission Date: 20080703
  Serious: Yes (Hospitalization)
  Sender: FDA-Public Use
  Company Number: 2008BI002345

PATIENT
  Age: 43 Year
  Sex: Female

DRUGS (1)
  1. TYSABRI [Suspect]
     Indication: MULTIPLE SCLEROSIS
     Dosage: 300 MG; QM; IV
     Route: 042
     Dates: start: 20070710

REACTIONS (6)
  - CENTRAL LINE INFECTION [None]
  - GASTRIC ULCER [None]
  - OBSTRUCTION GASTRIC [None]
  - POST PROCEDURAL INFECTION [None]
  - STAPHYLOCOCCAL SEPSIS [None]
  - UPPER GASTROINTESTINAL HAEMORRHAGE [None]
